FAERS Safety Report 5354054-9 (Version None)
Quarter: 2007Q2

REPORT INFORMATION
  Report Type: 
  Country: None (occurrence: None)
  Receive Date: 20070612
  Receipt Date: 20070607
  Transmission Date: 20071010
  Serious: Yes (Other)
  Sender: FDA-Public Use
  Company Number: A0654625A

PATIENT
  Age: 57 Year
  Sex: Male

DRUGS (13)
  1. AVANDIA [Suspect]
     Dosage: 1TAB TWICE PER DAY
     Route: 048
     Dates: start: 20060301, end: 20070607
  2. AVANDAMET [Suspect]
     Dates: start: 20060101
  3. METFORMIN HCL [Concomitant]
  4. CILOSTAZOL [Concomitant]
  5. TOPROL-XL [Concomitant]
  6. BACTRIM DS [Concomitant]
  7. DIOVAN [Concomitant]
  8. VICODIN [Concomitant]
  9. LISINOPRIL [Concomitant]
  10. FLEXERIL [Concomitant]
  11. IBUPROFEN [Concomitant]
  12. QUININE SULFATE [Concomitant]
  13. TENORMIN [Concomitant]
     Dates: end: 20050101

REACTIONS (5)
  - DRUG INEFFECTIVE [None]
  - HEART RATE IRREGULAR [None]
  - HYPERTENSION [None]
  - HYPOKALAEMIA [None]
  - SENSATION OF PRESSURE [None]
